FAERS Safety Report 25247892 (Version 1)
Quarter: 2025Q2

REPORT INFORMATION
  Report Type: Spontaneous
  Country: IL (occurrence: IL)
  Receive Date: 20250429
  Receipt Date: 20250429
  Transmission Date: 20250717
  Serious: Yes (Disabling)
  Sender: CHEPLAPHARM
  Company Number: IL-CHEPLA-2025005324

PATIENT
  Age: 20 Year
  Sex: Male

DRUGS (3)
  1. OLANZAPINE [Suspect]
     Active Substance: OLANZAPINE
     Dates: start: 20240601
  2. ZOLPIDEM TARTRATE [Concomitant]
     Active Substance: ZOLPIDEM TARTRATE
  3. CIPRALEX [Concomitant]
     Active Substance: ESCITALOPRAM OXALATE

REACTIONS (9)
  - Disturbance in attention [Unknown]
  - Asthenia [Unknown]
  - Apathy [Unknown]
  - Anhedonia [Unknown]
  - Parkinsonism [Unknown]
  - Memory impairment [Unknown]
  - Hypoaesthesia [Unknown]
  - Obesity [Unknown]
  - Increased appetite [Unknown]
